FAERS Safety Report 21286129 (Version 1)
Quarter: 2022Q3

REPORT INFORMATION
  Report Type: Spontaneous
  Country: NL (occurrence: NL)
  Receive Date: 20220902
  Receipt Date: 20220902
  Transmission Date: 20221026
  Serious: Yes (Life-Threatening, Hospitalization, Other)
  Sender: FDA-Public Use
  Company Number: None

PATIENT

DRUGS (3)
  1. ZEJULA [Suspect]
     Active Substance: NIRAPARIB
     Indication: Ovarian cancer stage IV
     Dosage: 300 MG, QD (1D 300MG)
     Route: 065
     Dates: start: 20220610, end: 20220703
  2. PANTOPRAZOL TABLET [Concomitant]
     Indication: Product used for unknown indication
     Dosage: 40 MG GASTRO-RESISTANT TABLET, 40 MG (MILLIGRAMS)
     Route: 065
  3. CHOLECALCIFEROL [Concomitant]
     Active Substance: CHOLECALCIFEROL
     Indication: Product used for unknown indication
     Dosage: QD (CAPSULE 1D1)
     Route: 065

REACTIONS (1)
  - Pancytopenia [Recovered/Resolved]
